FAERS Safety Report 5442098-8 (Version None)
Quarter: 2007Q3

REPORT INFORMATION
  Report Type: 
  Country: None (occurrence: None)
  Receive Date: 20070904
  Receipt Date: 20070822
  Transmission Date: 20080115
  Serious: Yes (Other)
  Sender: FDA-Public Use
  Company Number: BR-ROCHE-512642

PATIENT
  Age: 36 Year
  Sex: Female

DRUGS (4)
  1. CLONAZEPAM [Suspect]
     Route: 048
     Dates: start: 19970101, end: 20070801
  2. CLONAZEPAM [Suspect]
     Dosage: DOSAGE REGIMEN: DECREASED
     Route: 048
     Dates: start: 20070801
  3. FLUOXETINE [Concomitant]
     Dosage: PATIENT RECEIVED THERAPY FOR SOME YEARS.
  4. SIBUTRAMINE [Concomitant]
     Indication: DEPRESSION
     Dosage: TRADE NAME REPORTED AS CLO. PATIENT HAD BEEN RECEIVING THERAPY SINCE ONE YEAR ( APPROXIMATELY).
     Dates: start: 20060101

REACTIONS (1)
  - HENOCH-SCHONLEIN PURPURA [None]
